FAERS Safety Report 25617313 (Version 1)
Quarter: 2025Q3

REPORT INFORMATION
  Report Type: Spontaneous
  Country: US (occurrence: None)
  Receive Date: 20250728
  Receipt Date: 20250728
  Transmission Date: 20251020
  Serious: Yes (Other)
  Sender: FDA-CTU
  Company Number: None

PATIENT
  Age: 48 Year
  Sex: Male
  Weight: 87.3 kg

DRUGS (1)
  1. VRAYLAR [Suspect]
     Active Substance: CARIPRAZINE
     Indication: Bipolar I disorder
     Dates: start: 20250719, end: 20250728

REACTIONS (3)
  - Panic attack [None]
  - Insomnia [None]
  - Restlessness [None]

NARRATIVE: CASE EVENT DATE: 20250722
